FAERS Safety Report 9908465 (Version 1)
Quarter: 2014Q1

REPORT INFORMATION
  Report Type: Spontaneous
  Country: US (occurrence: None)
  Receive Date: 20140214
  Receipt Date: 20140214
  Transmission Date: 20141002
  Serious: Yes (Hospitalization)
  Sender: FDA-Public Use
  Company Number: None

PATIENT
  Age: 87 Year
  Sex: Female
  Weight: 59 kg

DRUGS (7)
  1. COUMADIN [Suspect]
     Indication: ATRIAL FIBRILLATION
     Dosage: CHRONIC
     Route: 048
  2. ATORVASTIN [Concomitant]
  3. LEVOTHYROXINE [Concomitant]
  4. CALCIUM CARBONATE [Concomitant]
  5. CENTRUM SILVER [Concomitant]
  6. VITAMIN B12 [Concomitant]
  7. GLIMEPIRIDE [Concomitant]

REACTIONS (2)
  - Subdural haemorrhage [None]
  - Fall [None]
